FAERS Safety Report 6899391-1 (Version None)
Quarter: 2010Q3

REPORT INFORMATION
  Report Type: 
  Country: None (occurrence: None)
  Receive Date: 20100803
  Receipt Date: 20090508
  Transmission Date: 20110219
  Serious: No
  Sender: FDA-Public Use
  Company Number: US-PFIZER INC-2009178257

PATIENT
  Sex: Female

DRUGS (4)
  1. NORVASC [Suspect]
  2. BENICAR [Suspect]
  3. ALTACE [Suspect]
  4. DIOVANE [Suspect]

REACTIONS (1)
  - DRUG INEFFECTIVE [None]
